FAERS Safety Report 18037419 (Version 1)
Quarter: 2020Q3

REPORT INFORMATION
  Report Type: Spontaneous
  Country: GB (occurrence: GB)
  Receive Date: 20200717
  Receipt Date: 20200717
  Transmission Date: 20201103
  Serious: Yes (Other)
  Sender: FDA-Public Use
  Company Number: GB-JNJFOC-20200712584

PATIENT
  Age: 10 Year
  Sex: Female
  Weight: 39.3 kg

DRUGS (1)
  1. INFLIXIMAB, RECOMBINANT [Suspect]
     Active Substance: INFLIXIMAB
     Indication: CROHN^S DISEASE
     Route: 042
     Dates: start: 20200624, end: 20200624

REACTIONS (5)
  - Functional gastrointestinal disorder [Unknown]
  - Syncope [Unknown]
  - Erythema [Unknown]
  - Pyrexia [Unknown]
  - Dyspnoea [Recovered/Resolved]

NARRATIVE: CASE EVENT DATE: 20200624
